FAERS Safety Report 5443230-2 (Version None)
Quarter: 2007Q3

REPORT INFORMATION
  Report Type: 
  Country: None (occurrence: None)
  Receive Date: 20070905
  Receipt Date: 20070828
  Transmission Date: 20080115
  Serious: Yes (Hospitalization, Disabling)
  Sender: FDA-Public Use
  Company Number: BR-AVENTIS-200717406GDDC

PATIENT
  Age: 73 Year
  Sex: Male
  Weight: 65 kg

DRUGS (7)
  1. LANTUS [Suspect]
     Dosage: DOSE: UNK
     Route: 058
     Dates: start: 20070701
  2. LANTUS [Suspect]
     Route: 058
     Dates: start: 20070802
  3. LANTUS [Suspect]
     Route: 058
     Dates: start: 20070801
  4. OPTIPEN (INSULIN PUMP) [Suspect]
     Dates: start: 20070701
  5. CAPTOPRIL [Concomitant]
     Indication: HYPERTENSION
     Route: 048
  6. CALTREN [Concomitant]
     Indication: HYPERTENSION
     Route: 048
  7. PROPRANOLOL [Concomitant]
     Indication: HYPERTENSION
     Route: 048

REACTIONS (11)
  - BLOOD PRESSURE INCREASED [None]
  - CONVULSION [None]
  - CRYING [None]
  - DISORIENTATION [None]
  - HYPERGLYCAEMIA [None]
  - KETOACIDOSIS [None]
  - MUSCLE RIGIDITY [None]
  - SPEECH DISORDER [None]
  - TONGUE PARALYSIS [None]
  - TREMOR [None]
  - VOMITING [None]
